FAERS Safety Report 8152214-5 (Version None)
Quarter: 2012Q1

REPORT INFORMATION
  Report Type: 
  Country: None (occurrence: None)
  Receive Date: 20120214
  Receipt Date: 20120131
  Transmission Date: 20120608
  Serious: Yes (Hospitalization)
  Sender: FDA-Public Use
  Company Number: TCI2011A06614

PATIENT
  Age: 71 Year
  Sex: Female

DRUGS (9)
  1. ACTOS [Suspect]
     Indication: DIABETES MELLITUS
     Dosage: 15 MG (15 MG, 1 IN 1 D),  PER ORAL; PER ORAL
     Route: 048
     Dates: start: 20060128, end: 20110705
  2. ACTOS [Suspect]
     Indication: DIABETES MELLITUS
     Dosage: 15 MG (15 MG, 1 IN 1 D),  PER ORAL; PER ORAL
     Route: 048
     Dates: start: 20051216, end: 20060127
  3. VOGLIBOSE [Concomitant]
  4. BASEN OD TABLETS (VOGLIBOSE) [Concomitant]
  5. LIPITOR [Concomitant]
  6. AMARYL [Concomitant]
  7. MICARDIS [Concomitant]
  8. ACTONEL [Concomitant]
  9. AMLODIPINE [Concomitant]

REACTIONS (4)
  - SPINAL COMPRESSION FRACTURE [None]
  - TIBIA FRACTURE [None]
  - FALL [None]
  - OSTEOPOROSIS [None]
